FAERS Safety Report 10774559 (Version 1)
Quarter: 2015Q1

REPORT INFORMATION
  Report Type: Spontaneous
  Country: US (occurrence: None)
  Receive Date: 20150206
  Receipt Date: 20150206
  Transmission Date: 20150721
  Serious: No
  Sender: FDA-Public Use
  Company Number: HYP201410-000074

PATIENT
  Age: 6 Year
  Sex: Female

DRUGS (4)
  1. CALCIUM [Concomitant]
     Active Substance: CALCIUM
  2. RAVICTI [Suspect]
     Active Substance: GLYCEROL PHENYLBUTYRATE
     Indication: UREA CYCLE ENZYME DEFICIENCY
     Dates: start: 201308, end: 20140912
  3. CITRULLINE [Concomitant]
     Active Substance: CITRULLINE
  4. MULTIVITAMINS (ASCORBIC ACID, ERGOCALCIFEROL, FOLIC ACID, NICOTINAMIDE, PANTHENOL, RETINOL, RIBIFLAVIN, THIAMINE HYDROCHLORIDE) [Concomitant]

REACTIONS (3)
  - Oropharyngeal pain [None]
  - Pyrexia [None]
  - Abdominal pain [None]

NARRATIVE: CASE EVENT DATE: 2013
